FAERS Safety Report 19259196 (Version 6)
Quarter: 2023Q2

REPORT INFORMATION
  Report Type: Spontaneous
  Country: CA (occurrence: CA)
  Receive Date: 20210514
  Receipt Date: 20230606
  Transmission Date: 20230722
  Serious: Yes (Hospitalization, Other)
  Sender: FDA-Public Use
  Company Number: CA-BAXTER-2021BAX010119

PATIENT
  Age: 49 Year
  Sex: Female

DRUGS (43)
  1. NOREPINEPHRINE BITARTRATE [Interacting]
     Active Substance: NOREPINEPHRINE BITARTRATE
     Indication: Hypotension
     Route: 065
  2. SEVOFLURANE [Interacting]
     Active Substance: SEVOFLURANE
     Indication: Maintenance of anaesthesia
     Dosage: AT AN UNSPECIFIED DOSE AND FREQUENCY (DOSAGE FORM: LIQUID INHALATION)
  3. SEVOFLURANE [Interacting]
     Active Substance: SEVOFLURANE
     Indication: Depression
     Dosage: AT UNSPECIFIED DOSE AND FREQUENCY (DOSAGE FORM: LIQUID INHALATION)
     Route: 065
  4. SEVOFLURANE [Interacting]
     Active Substance: SEVOFLURANE
     Indication: Anxiety
  5. PROPOFOL [Interacting]
     Active Substance: PROPOFOL
     Indication: Induction of anaesthesia
     Dosage: 9 MG/KG (DOSAGE FORM: NOT SPECIFIED)
     Route: 065
  6. PROPOFOL [Interacting]
     Active Substance: PROPOFOL
     Dosage: AT AN UNSPECIFIED DOSE AND FREQUENCY (DOSAGE FORM: NOT SPECIFIED)
     Route: 065
  7. CLONAZEPAM [Suspect]
     Active Substance: CLONAZEPAM
     Indication: Depression
     Dosage: 0.5 MILLIGRAMS (MG) AT AN UNSPECIFIED FREQUENCY
     Route: 048
  8. CLONAZEPAM [Suspect]
     Active Substance: CLONAZEPAM
     Indication: Anxiety
     Dosage: 1 MILLIGRAM (MG) AT AN UNSPECIFIED FREQUENCY
     Route: 065
  9. CLONAZEPAM [Suspect]
     Active Substance: CLONAZEPAM
     Dosage: 0.5 MILLIGRAMS (MG) AT AN UNSPECIFIED FREQUENCY
     Route: 065
  10. CLONAZEPAM [Suspect]
     Active Substance: CLONAZEPAM
     Dosage: UNK
     Route: 065
  11. DIAZEPAM [Suspect]
     Active Substance: DIAZEPAM
     Indication: Preoperative care
     Dosage: 10 MILLIGRAMS (MG) (DOSAGE FORM: NOT SPECIFIED)
     Route: 065
  12. DIAZEPAM [Suspect]
     Active Substance: DIAZEPAM
     Dosage: AT AN UNSPECIFIED DOSE AND FREQUENCY (DOSAGE FORM: NOT SPECIFIED)
     Route: 065
  13. FENTANYL [Interacting]
     Active Substance: FENTANYL
     Indication: Anaesthesia procedure
     Dosage: 13 UG/KG AT AN UNSPECIFIED FREQUENCY (DOSAGE FORM: NOT SPECIFIED)
     Route: 042
  14. FENTANYL [Interacting]
     Active Substance: FENTANYL
     Dosage: AT AN UNSPECIFIED DOSE AND FREQUENCY (DOSAGE FORM: NOT SPECIFIED)
     Route: 042
  15. FENTANYL [Interacting]
     Active Substance: FENTANYL
     Dosage: 13 DOSAGE FORM AT AN UNSPECIFIED FREQUENCY (DOSAGE FORM: NOT SPECIFIED)
     Route: 042
  16. FLUVOXAMINE [Interacting]
     Active Substance: FLUVOXAMINE
     Indication: Product used for unknown indication
     Route: 065
  17. FLUVOXAMINE [Interacting]
     Active Substance: FLUVOXAMINE
     Indication: Product used for unknown indication
     Dosage: UNK
     Route: 065
  18. MEPERIDINE [Interacting]
     Active Substance: MEPERIDINE
     Indication: Product used for unknown indication
     Dosage: AT AN UNSPECIFIED DOSE AND FREQUENCY (DOSAGE FORM: NOT SPECIFIED)
     Route: 065
  19. MEPERIDINE HYDROCHLORIDE [Interacting]
     Active Substance: MEPERIDINE HYDROCHLORIDE
     Indication: Product used for unknown indication
     Route: 065
  20. METHYLENE BLUE [Interacting]
     Active Substance: METHYLENE BLUE
     Indication: Hypotension
     Dosage: 1 MG/KG AT AN UNSPECIFIED FREQUENCY (DOSAGE FORM: NOT SPECIFIED)
     Route: 065
  21. METHYLENE BLUE [Interacting]
     Active Substance: METHYLENE BLUE
     Indication: Anaesthesia procedure
  22. MIDAZOLAM [Interacting]
     Active Substance: MIDAZOLAM
     Indication: Anaesthesia procedure
     Dosage: 0.3 UG/KG AT AN UNSPECIFIED FREQUENCY
     Route: 065
  23. MIDAZOLAM HYDROCHLORIDE [Interacting]
     Active Substance: MIDAZOLAM HYDROCHLORIDE
     Indication: Hypotension
     Dosage: 0.3 UG/KG AT AN UNSPECIFIED FREQUENCY
     Route: 065
  24. MIDAZOLAM HYDROCHLORIDE [Interacting]
     Active Substance: MIDAZOLAM HYDROCHLORIDE
     Indication: Anaesthesia procedure
     Dosage: 3 DOSAGE FORMS AT UNSPECIFIED FREQEUNCY (DOSAGE FORM: NOT SPECIFIED)
     Route: 065
  25. NOREPINEPHRINE [Interacting]
     Active Substance: NOREPINEPHRINE
     Indication: Hypotension
     Dosage: AT AN UNSPECIFIED DOSE AND FREQUENCY (DOSAGE FORM: NOT SPECIFIED)
     Route: 065
  26. PAROXETINE [Interacting]
     Active Substance: PAROXETINE
     Indication: Depression
     Dosage: 40 MILLIGRAMS (MG) AT AN UNSPECIFIED FREQUENCY
     Route: 065
  27. PAROXETINE [Interacting]
     Active Substance: PAROXETINE
     Indication: Anxiety
  28. PAROXETINE HYDROCHLORIDE [Interacting]
     Active Substance: PAROXETINE HYDROCHLORIDE
     Indication: Depression
     Dosage: 40 MILLIGRAMS (MG) AT AN UNSPECIFIED FREQUENCY
     Route: 065
  29. PAROXETINE HYDROCHLORIDE [Interacting]
     Active Substance: PAROXETINE HYDROCHLORIDE
     Indication: Anxiety
  30. PAROXETINE HYDROCHLORIDE [Interacting]
     Active Substance: PAROXETINE HYDROCHLORIDE
     Indication: Depression
     Dosage: UNK
     Route: 065
  31. PAROXETINE HYDROCHLORIDE [Interacting]
     Active Substance: PAROXETINE HYDROCHLORIDE
     Indication: Anxiety
  32. QUETIAPINE [Suspect]
     Active Substance: QUETIAPINE
     Indication: Depression
     Dosage: 25 MILLIGRAM, 1 EVERY 1 DAY
     Route: 065
  33. QUETIAPINE [Suspect]
     Active Substance: QUETIAPINE
     Indication: Anxiety
     Dosage: 50 MILLIGRAMS, 1 EVERY 1 DAY
     Route: 065
  34. QUETIAPINE FUMARATE [Interacting]
     Active Substance: QUETIAPINE FUMARATE
     Indication: Depression
     Dosage: 25 MILLIGRAMS, 2 EVERY 1 DAYS
     Route: 065
  35. QUETIAPINE FUMARATE [Interacting]
     Active Substance: QUETIAPINE FUMARATE
     Indication: Anxiety
  36. QUETIAPINE FUMARATE [Interacting]
     Active Substance: QUETIAPINE FUMARATE
     Indication: Hypotension
     Dosage: 50 MILLIGRAM, 1 EVERY 1 DAYS
     Route: 065
  37. QUETIAPINE FUMARATE [Interacting]
     Active Substance: QUETIAPINE FUMARATE
     Dosage: UNK
     Route: 065
  38. QUETIAPINE FUMARATE [Interacting]
     Active Substance: QUETIAPINE FUMARATE
     Dosage: 25 MILLIGRAM 1 EVEY 12 HOURS
     Route: 065
  39. QUETIAPINE FUMARATE [Interacting]
     Active Substance: QUETIAPINE FUMARATE
     Indication: Hypotension
     Dosage: UNK
     Route: 048
  40. ROCURONIUM [Interacting]
     Active Substance: ROCURONIUM BROMIDE
     Indication: Hypotonia
     Dosage: 1 MG/KG AT AN UNSPECIFIED FREQUENCY (DOSAGE FORM: NOT SPECIFIED)
     Route: 065
  41. ROCURONIUM [Interacting]
     Active Substance: ROCURONIUM BROMIDE
     Indication: Depression
  42. ROCURONIUM [Interacting]
     Active Substance: ROCURONIUM BROMIDE
     Indication: Anxiety
  43. ROCURONIUM BROMIDE [Interacting]
     Active Substance: ROCURONIUM BROMIDE
     Indication: Hypotonia
     Route: 065

REACTIONS (12)
  - Serotonin syndrome [Recovered/Resolved]
  - Toxic encephalopathy [Recovered/Resolved]
  - Troponin increased [Recovered/Resolved]
  - Amylase increased [Recovered/Resolved]
  - Drug interaction [Recovered/Resolved]
  - Blood creatine phosphokinase increased [Recovered/Resolved]
  - Myoglobin urine present [Recovered/Resolved]
  - Drug level below therapeutic [Recovered/Resolved]
  - Alanine aminotransferase increased [Recovered/Resolved]
  - Blood lactate dehydrogenase increased [Recovered/Resolved]
  - Blood potassium increased [Recovered/Resolved]
  - Hypotension [Recovered/Resolved]
